FAERS Safety Report 9180232 (Version 3)
Quarter: 2013Q2

REPORT INFORMATION
  Report Type: Spontaneous
  Country: US (occurrence: US)
  Receive Date: 20130322
  Receipt Date: 20130617
  Transmission Date: 20140414
  Serious: No
  Sender: FDA-Public Use
  Company Number: US-009507513-1303USA009300

PATIENT
  Age: 19 Year
  Sex: Female

DRUGS (3)
  1. NEXPLANON [Suspect]
     Indication: CONTRACEPTION
     Dosage: 1 ROD, EVERY THREE YEARS
     Route: 059
     Dates: start: 20130220, end: 20130220
  2. NEXPLANON [Suspect]
     Dosage: 1 ROD, EVERY THREE YEARS
     Route: 059
     Dates: start: 20130220
  3. IMPLANON [Concomitant]
     Dosage: UNK
     Dates: end: 20130220

REACTIONS (3)
  - Implant site cellulitis [Recovered/Resolved]
  - Device expulsion [Recovered/Resolved]
  - Medical device complication [Recovered/Resolved]
